FAERS Safety Report 4758664-9 (Version None)
Quarter: 2005Q3

REPORT INFORMATION
  Report Type: 
  Country: None (occurrence: None)
  Receive Date: 20050830
  Receipt Date: 20050830
  Transmission Date: 20060218
  Serious: Yes (Life-Threatening, Hospitalization)
  Sender: FDA-Public Use
  Company Number: None

PATIENT
  Age: 82 Year
  Sex: Male
  Weight: 101.6057 kg

DRUGS (7)
  1. LOVENOX [Suspect]
     Indication: ATRIAL FIBRILLATION
     Dosage: 100 MG SC Q 24 H
     Route: 058
     Dates: start: 20050414, end: 20050418
  2. LOVENOX [Suspect]
     Indication: PULMONARY EMBOLISM
     Dosage: 100 MG SC Q 24 H
     Route: 058
     Dates: start: 20050414, end: 20050418
  3. HEPARIN LOCK-FLUSH [Suspect]
     Dosage: 300 UNITS DAILY
     Dates: start: 20050330, end: 20050418
  4. METOCLOPRAMIDE [Concomitant]
  5. SINEMET [Concomitant]
  6. PREVACID [Concomitant]
  7. METOPROLOL [Concomitant]

REACTIONS (2)
  - HEPARIN-INDUCED THROMBOCYTOPENIA [None]
  - PULMONARY HAEMORRHAGE [None]
